FAERS Safety Report 7656171-7 (Version None)
Quarter: 2011Q3

REPORT INFORMATION
  Report Type: 
  Country: None (occurrence: None)
  Receive Date: 20110804
  Receipt Date: 20110801
  Transmission Date: 20111222
  Serious: Yes (Other)
  Sender: FDA-Public Use
  Company Number: ZA-PFIZER INC-2011175320

PATIENT
  Age: 76 Year
  Sex: Female
  Weight: 101.5 kg

DRUGS (1)
  1. SUTENT [Suspect]
     Indication: METASTATIC RENAL CELL CARCINOMA
     Dosage: 50 MG, 1X/DAY
     Route: 048
     Dates: start: 20110310, end: 20110419

REACTIONS (5)
  - HAEMORRHAGIC DIATHESIS [None]
  - GINGIVAL BLEEDING [None]
  - CONJUNCTIVAL HAEMORRHAGE [None]
  - DIARRHOEA [None]
  - PLATELET COUNT DECREASED [None]
